FAERS Safety Report 5451583-4 (Version None)
Quarter: 2007Q3

REPORT INFORMATION
  Report Type: 
  Country: None (occurrence: None)
  Receive Date: 20070913
  Receipt Date: 20070911
  Transmission Date: 20080115
  Serious: Yes (Hospitalization)
  Sender: FDA-Public Use
  Company Number: JP-BOEHRINGER INGELHEIM PHARMACEUTICALS, INC.-2007-BP-20913NB

PATIENT
  Age: 70 Year
  Sex: Male

DRUGS (4)
  1. MICARDIS [Suspect]
     Indication: HYPERTENSION
     Route: 048
     Dates: start: 20070905
  2. INSULIN [Concomitant]
     Route: 042
  3. METHYCOBAL (MECOBALAMIN) [Concomitant]
     Route: 048
  4. ZOLPIDEM [Concomitant]
     Route: 048

REACTIONS (2)
  - ANGINA PECTORIS [None]
  - ATRIOVENTRICULAR BLOCK COMPLETE [None]
